FAERS Safety Report 7964924-0 (Version None)
Quarter: 2011Q4

REPORT INFORMATION
  Report Type: 
  Country: None (occurrence: None)
  Receive Date: 20111208
  Receipt Date: 20111208
  Transmission Date: 20120403
  Serious: No
  Sender: FDA-Public Use
  Company Number: None

PATIENT
  Age: 39 Year
  Sex: Female

DRUGS (1)
  1. CLINDAMYCIN [Suspect]
     Dosage: UNKNOWN
     Route: 048

REACTIONS (2)
  - DRY MOUTH [None]
  - RASH [None]
